FAERS Safety Report 6517462-6 (Version None)
Quarter: 2009Q4

REPORT INFORMATION
  Report Type: 
  Country: None (occurrence: None)
  Receive Date: 20091224
  Receipt Date: 20091215
  Transmission Date: 20100525
  Serious: Yes (Other)
  Sender: FDA-Public Use
  Company Number: US-ASTRAZENECA-2009UW20463

PATIENT
  Age: 32 Year
  Sex: Female
  Weight: 108.9 kg

DRUGS (9)
  1. SEROQUEL [Suspect]
     Indication: BIPOLAR DISORDER
     Route: 048
     Dates: start: 20070101
  2. SEROQUEL [Suspect]
     Indication: DISSOCIATIVE IDENTITY DISORDER
     Route: 048
     Dates: start: 20070101
  3. ABILIFY [Concomitant]
     Dates: start: 20070101
  4. GEODON [Concomitant]
     Dates: start: 20070101
  5. RISPERDAL [Concomitant]
     Dates: start: 20070101
  6. THORAZINE [Concomitant]
     Dates: start: 20010101
  7. TRILEPTAL [Concomitant]
     Dates: start: 20070101
  8. XANEX [Concomitant]
     Dates: start: 20070101
  9. EFFEXOR [Concomitant]
     Dates: start: 20070101

REACTIONS (5)
  - DIABETES MELLITUS [None]
  - GALLBLADDER DISORDER [None]
  - GASTROINTESTINAL STROMAL TUMOUR [None]
  - LIVER DISORDER [None]
  - SUICIDAL IDEATION [None]
